FAERS Safety Report 14922547 (Version 1)
Quarter: 2018Q2

REPORT INFORMATION
  Report Type: Spontaneous
  Country: US (occurrence: US)
  Receive Date: 20180522
  Receipt Date: 20180522
  Transmission Date: 20180711
  Serious: No
  Sender: FDA-Public Use
  Company Number: US-PFIZER INC-2018207129

PATIENT
  Age: 54 Year
  Sex: Female

DRUGS (1)
  1. XELJANZ [Suspect]
     Active Substance: TOFACITINIB CITRATE
     Dosage: UNK

REACTIONS (7)
  - Pain in extremity [Unknown]
  - Joint swelling [Unknown]
  - Drug ineffective [Unknown]
  - Insomnia [Unknown]
  - Arthralgia [Unknown]
  - Arthropathy [Unknown]
  - Pain [Unknown]
